FAERS Safety Report 4761517-3 (Version None)
Quarter: 2005Q3

REPORT INFORMATION
  Report Type: 
  Country: None (occurrence: None)
  Receive Date: 20050906
  Receipt Date: 20050818
  Transmission Date: 20060218
  Serious: Yes (Hospitalization)
  Sender: FDA-Public Use
  Company Number: DE-GLAXOSMITHKLINE-D0047325A

PATIENT
  Age: 64 Year
  Sex: Female
  Weight: 56 kg

DRUGS (3)
  1. IMIGRAN [Suspect]
     Indication: MIGRAINE
     Route: 065
     Dates: start: 19930101, end: 20000101
  2. RELPAX [Suspect]
     Indication: MIGRAINE
     Route: 048
     Dates: end: 20020101
  3. ALMOGRAN [Suspect]
     Indication: MIGRAINE
     Dosage: 12.5MG AS REQUIRED
     Route: 048
     Dates: start: 20020617, end: 20050602

REACTIONS (1)
  - RETINAL DETACHMENT [None]
